FAERS Safety Report 14193072 (Version 1)
Quarter: 2017Q4

REPORT INFORMATION
  Report Type: Spontaneous
  Country: IN (occurrence: IN)
  Receive Date: 20171116
  Receipt Date: 20171116
  Transmission Date: 20180321
  Serious: No
  Sender: FDA-Public Use
  Company Number: IN-LUPIN PHARMACEUTICALS INC.-2017-01018

PATIENT
  Age: 21 Year
  Sex: Female

DRUGS (6)
  1. CETIRIZINE [Concomitant]
     Active Substance: CETIRIZINE HYDROCHLORIDE
     Dosage: UNK
     Dates: start: 20170226
  2. CETIRIZINE [Concomitant]
     Active Substance: CETIRIZINE HYDROCHLORIDE
     Indication: TINEA INFECTION
     Dosage: 1 DF, QD
     Route: 048
     Dates: start: 20170223, end: 20170225
  3. ITRANOX [Concomitant]
     Indication: TINEA INFECTION
     Dosage: 1 DF, QD
     Route: 048
     Dates: start: 20170223, end: 20170225
  4. YAMINI TABS [Suspect]
     Active Substance: DROSPIRENONE\ETHINYL ESTRADIOL
     Dosage: 1 DF, QD
     Dates: start: 20170223, end: 20170225
  5. YAMINI TABS [Suspect]
     Active Substance: DROSPIRENONE\ETHINYL ESTRADIOL
     Dosage: 1 DF, QD (AT NIGHT)
     Dates: start: 20170226, end: 20170227
  6. FEROTIN [Concomitant]
     Indication: TINEA INFECTION
     Dosage: 1 DF, QD
     Route: 048
     Dates: start: 20170223, end: 20170225

REACTIONS (7)
  - Nausea [Not Recovered/Not Resolved]
  - Discomfort [None]
  - Product use in unapproved indication [Unknown]
  - Vomiting [Recovered/Resolved]
  - Feeling abnormal [Not Recovered/Not Resolved]
  - Laziness [Not Recovered/Not Resolved]
  - Pyrexia [Not Recovered/Not Resolved]

NARRATIVE: CASE EVENT DATE: 20170223
